FAERS Safety Report 5773938-0 (Version None)
Quarter: 2008Q2

REPORT INFORMATION
  Report Type: 
  Country: None (occurrence: None)
  Receive Date: 20080616
  Receipt Date: 20080605
  Transmission Date: 20081010
  Serious: Yes (Hospitalization, Other)
  Sender: FDA-Public Use
  Company Number: GB-JNJFOC-20080502685

PATIENT
  Sex: Male
  Weight: 31 kg

DRUGS (4)
  1. CONCERTA [Suspect]
     Dosage: 18 MG AND 27 MG EVERY MORNING
     Route: 048
  2. CONCERTA [Suspect]
     Indication: ATTENTION DEFICIT/HYPERACTIVITY DISORDER
     Route: 048
  3. METHYLPHENIDATE HCL [Suspect]
     Route: 065
  4. METHYLPHENIDATE HCL [Suspect]
     Indication: ATTENTION DEFICIT/HYPERACTIVITY DISORDER
     Route: 065

REACTIONS (4)
  - INSOMNIA [None]
  - MUSCULOSKELETAL PAIN [None]
  - THERAPEUTIC RESPONSE DECREASED [None]
  - VOMITING [None]
